FAERS Safety Report 7146232-3 (Version None)
Quarter: 2010Q4

REPORT INFORMATION
  Report Type: 
  Country: None (occurrence: None)
  Receive Date: 20101208
  Receipt Date: 20101130
  Transmission Date: 20110411
  Serious: Yes (Hospitalization, Disabling)
  Sender: FDA-Public Use
  Company Number: JP-PFIZER INC-JP-WYE-H18312210

PATIENT
  Age: 82 Year
  Sex: Male
  Weight: 44.7 kg

DRUGS (9)
  1. ANCARON [Suspect]
     Indication: ATRIAL FIBRILLATION
     Dosage: 100 MG, DAILY
     Route: 048
     Dates: start: 20080830, end: 20101020
  2. ANCARON [Suspect]
     Dosage: 100 MG, 1X/DAY
     Route: 048
     Dates: start: 20101121
  3. TORASEMIDE [Concomitant]
     Dosage: UNK
     Dates: start: 20080827
  4. COVERSYL [Concomitant]
     Dosage: UNK
     Dates: start: 20080827
  5. ASPIRIN [Concomitant]
     Dosage: UNK
     Dates: start: 20080908
  6. PARIET [Concomitant]
     Dosage: UNK
     Dates: start: 20080908
  7. TICLOPIDINE HYDROCHLORIDE [Concomitant]
     Dosage: UNK
     Dates: start: 20080908
  8. FRANDOL [Concomitant]
     Dosage: UNK
     Dates: start: 20080908
  9. NOVOLIN R [Concomitant]
     Dosage: UNK

REACTIONS (2)
  - BRADYCARDIA [None]
  - CARDIAC ARREST [None]
